FAERS Safety Report 11037844 (Version 1)
Quarter: 2015Q2

REPORT INFORMATION
  Report Type: Spontaneous
  Country: None (occurrence: None)
  Receive Date: 20150415
  Receipt Date: 20150415
  Transmission Date: 20150821
  Serious: No
  Sender: FDA-Public Use
  Company Number: None

PATIENT
  Age: 53 Year
  Sex: Female
  Weight: 81.65 kg

DRUGS (1)
  1. SUPREP BOWEL PREP [Suspect]
     Active Substance: MAGNESIUM SULFATE\POTASSIUM SULFATE\SODIUM SULFATE
     Indication: COLONOSCOPY
     Dosage: 2 BOTTLES W/16 OZ WATER
     Route: 048
     Dates: start: 20131023, end: 20131024

REACTIONS (4)
  - Dehydration [None]
  - Anorectal discomfort [None]
  - Headache [None]
  - Faeces discoloured [None]

NARRATIVE: CASE EVENT DATE: 20131024
